FAERS Safety Report 4860936-4 (Version None)
Quarter: 2005Q4

REPORT INFORMATION
  Report Type: 
  Country: None (occurrence: None)
  Receive Date: 20051220
  Receipt Date: 20051209
  Transmission Date: 20060501
  Serious: Yes (Death, Other)
  Sender: FDA-Public Use
  Company Number: CA-BRISTOL-MYERS SQUIBB COMPANY-13218334

PATIENT
  Age: 16 Year
  Sex: Female

DRUGS (10)
  1. TEQUIN [Suspect]
  2. ACETAMINOPHEN [Concomitant]
  3. CLOBAZAM [Concomitant]
  4. COTRIM [Concomitant]
  5. MAGNESIUM GLUCOHEPTONATE [Concomitant]
  6. OMEPRAZOLE [Concomitant]
  7. PREDNISONE TAB [Concomitant]
  8. TACROLIMUS [Concomitant]
     Route: 048
  9. FK-506 [Concomitant]
     Route: 048
  10. URSODIOL [Concomitant]

REACTIONS (8)
  - BLOOD UREA DECREASED [None]
  - BLOOD UREA INCREASED [None]
  - CONVULSION [None]
  - CYANOSIS [None]
  - DEATH [None]
  - HYPERGLYCAEMIA [None]
  - HYPONATRAEMIA [None]
  - LOSS OF CONSCIOUSNESS [None]
